FAERS Safety Report 24201912 (Version 2)
Quarter: 2024Q4

REPORT INFORMATION
  Report Type: Spontaneous
  Country: US (occurrence: US)
  Receive Date: 20240812
  Receipt Date: 20241003
  Transmission Date: 20250115
  Serious: Yes (Hospitalization, Other)
  Sender: NOVARTIS
  Company Number: US-002147023-NVSC2024US160533

PATIENT
  Age: 66 Year
  Sex: Female
  Weight: 62 kg

DRUGS (6)
  1. KYMRIAH [Suspect]
     Active Substance: TISAGENLECLEUCEL
     Indication: Follicular lymphoma refractory
     Dosage: UNK, ONCE/SINGLE (0.6 X 10E8 - 6.0 X 10E8 CAR-POSITIVE, 50 ML) (MATERNAL EXPOSURE TIMING UNSPECIFIED
     Route: 042
     Dates: start: 20240401, end: 20240401
  2. ZOSYN [Concomitant]
     Active Substance: PIPERACILLIN SODIUM\TAZOBACTAM SODIUM
     Indication: Product used for unknown indication
     Dosage: UNK (MATERNAL EXPOSURE TIMING UNSPECIFIED)
     Route: 065
     Dates: end: 20240408
  3. ANAKINRA [Concomitant]
     Active Substance: ANAKINRA
     Indication: Product used for unknown indication
     Dosage: 100 MG, Q6H (MATERNAL EXPOSURE TIMING UNSPECIFIED)
     Route: 065
  4. ANAKINRA [Concomitant]
     Active Substance: ANAKINRA
     Dosage: 500 MG, QD (MATERNAL EXPOSURE TIMING UNSPECIFIED)
     Route: 065
  5. ANAKINRA [Concomitant]
     Active Substance: ANAKINRA
     Dosage: 500 MG, BID (MATERNAL EXPOSURE TIMING UNSPECIFIED)
     Route: 065
     Dates: start: 20240408
  6. ALLOPURINOL [Concomitant]
     Active Substance: ALLOPURINOL
     Indication: Product used for unknown indication
     Dosage: UNK (MATERNAL EXPOSURE TIMING UNSPECIFIED)
     Route: 065

REACTIONS (7)
  - Cytokine release syndrome [Recovered/Resolved]
  - Pyrexia [Unknown]
  - Heart rate increased [Unknown]
  - Blood pressure systolic increased [Unknown]
  - Blood pressure diastolic increased [Unknown]
  - Tachycardia [Unknown]
  - Maternal exposure timing unspecified [Unknown]

NARRATIVE: CASE EVENT DATE: 20240404
